FAERS Safety Report 4921129-5 (Version None)
Quarter: 2006Q1

REPORT INFORMATION
  Report Type: 
  Country: None (occurrence: None)
  Receive Date: 20060223
  Receipt Date: 20051025
  Transmission Date: 20060701
  Serious: Yes (Hospitalization)
  Sender: FDA-Public Use
  Company Number: US-MERCK-0510USA09195

PATIENT
  Age: 69 Year
  Sex: Female
  Weight: 63 kg

DRUGS (9)
  1. VIOXX [Suspect]
     Indication: ARTHRITIS
     Route: 048
     Dates: start: 20000701, end: 20011010
  2. [THERAPY UNSPECIFIED] [Concomitant]
     Indication: HYPERTENSION
     Route: 065
     Dates: start: 20000825
  3. PRAVACHOL [Concomitant]
     Indication: BLOOD CHOLESTEROL INCREASED
     Route: 065
  4. NAPROXEN [Concomitant]
     Indication: PAIN
     Route: 065
     Dates: start: 20000517
  5. NAPROXEN [Concomitant]
     Indication: ARTHRITIS
     Route: 065
     Dates: start: 20000517
  6. [THERAPY UNSPECIFIED] [Concomitant]
     Indication: PAIN
     Route: 065
     Dates: start: 20000101, end: 20000901
  7. [THERAPY UNSPECIFIED] [Concomitant]
     Indication: ARTHRITIS
     Route: 065
     Dates: start: 20000101, end: 20000901
  8. [THERAPY UNSPECIFIED] [Concomitant]
     Route: 065
     Dates: start: 20000301, end: 20000901
  9. PREMARIN [Concomitant]
     Indication: HORMONE REPLACEMENT THERAPY
     Route: 065
     Dates: start: 20000331

REACTIONS (6)
  - CEREBROVASCULAR ACCIDENT [None]
  - CHEST PAIN [None]
  - EYE DISORDER [None]
  - GLAUCOMA [None]
  - HIP FRACTURE [None]
  - HYPERTENSION [None]
